FAERS Safety Report 4460465-6 (Version None)
Quarter: 2004Q3

REPORT INFORMATION
  Report Type: 
  Country: None (occurrence: None)
  Receive Date: 20040928
  Receipt Date: 20040817
  Transmission Date: 20050211
  Serious: No
  Sender: FDA-Public Use
  Company Number: US-GLAXOSMITHKLINE-A0522455A

PATIENT
  Age: 90 Year
  Sex: Female

DRUGS (3)
  1. SEREVENT [Suspect]
     Indication: ILL-DEFINED DISORDER
     Dosage: 2BLS TWICE PER DAY
     Route: 055
     Dates: start: 20030801
  2. COMBIVENT [Concomitant]
  3. AEROBID [Concomitant]

REACTIONS (1)
  - DRUG INEFFECTIVE [None]
